FAERS Safety Report 20749235 (Version 5)
Quarter: 2025Q4

REPORT INFORMATION
  Report Type: Spontaneous
  Country: EU (occurrence: EU)
  Receive Date: 20220426
  Receipt Date: 20251013
  Transmission Date: 20260118
  Serious: Yes (Hospitalization)
  Sender: AUROBINDO
  Company Number: EU-SUN PHARMACEUTICAL INDUSTRIES LTD-2022R1-332141

PATIENT
  Age: 72 Year
  Sex: Female

DRUGS (13)
  1. CEFUROXIME [Suspect]
     Active Substance: CEFUROXIME
     Indication: Diarrhoea
     Dosage: 750 MILLIGRAM, 3 TIMES A DAY
     Route: 065
     Dates: start: 2021
  2. CEFUROXIME [Suspect]
     Active Substance: CEFUROXIME
     Indication: Leukocytosis
  3. CEFUROXIME [Suspect]
     Active Substance: CEFUROXIME
     Indication: C-reactive protein increased
  4. METRONIDAZOLE [Suspect]
     Active Substance: METRONIDAZOLE
     Indication: Diarrhoea
     Dosage: 500 MILLIGRAM, 3 TIMES A DAY
     Route: 065
     Dates: start: 2021
  5. METRONIDAZOLE [Suspect]
     Active Substance: METRONIDAZOLE
     Indication: C-reactive protein increased
  6. METRONIDAZOLE [Suspect]
     Active Substance: METRONIDAZOLE
     Indication: Leukocytosis
  7. MEROPENEM [Suspect]
     Active Substance: MEROPENEM
     Indication: Diarrhoea
     Dosage: 1 GRAM, TWO TIMES A DAY
     Route: 065
     Dates: start: 2021
  8. MEROPENEM [Suspect]
     Active Substance: MEROPENEM
     Indication: C-reactive protein increased
  9. MEROPENEM [Suspect]
     Active Substance: MEROPENEM
     Indication: Leukocytosis
  10. DEXAMETHASONE [Concomitant]
     Active Substance: DEXAMETHASONE
     Indication: COVID-19 pneumonia
     Dosage: UNK
     Route: 065
     Dates: start: 2021
  11. OXYGEN [Concomitant]
     Active Substance: OXYGEN
     Indication: COVID-19 pneumonia
     Dosage: PASSIVE OXYGEN THERAPY
     Route: 065
     Dates: start: 2021
  12. REMDESIVIR [Concomitant]
     Active Substance: REMDESIVIR
     Indication: COVID-19 pneumonia
     Dosage: UNK
     Route: 065
     Dates: start: 2021
  13. MESALAMINE [Concomitant]
     Active Substance: MESALAMINE
     Indication: Product used for unknown indication
     Dosage: UNK (2 X1000 MG DOUSMIE)
     Route: 065

REACTIONS (1)
  - Therapy non-responder [Unknown]
